FAERS Safety Report 18600370 (Version 1)
Quarter: 2020Q4

REPORT INFORMATION
  Report Type: Spontaneous
  Country: US (occurrence: US)
  Receive Date: 20201210
  Receipt Date: 20201210
  Transmission Date: 20210114
  Serious: Yes (Hospitalization)
  Sender: FDA-Public Use
  Company Number: US-TEVA-2020-US-1856277

PATIENT
  Age: 60 Year
  Sex: Female

DRUGS (7)
  1. LEVETIRACETAM. [Suspect]
     Active Substance: LEVETIRACETAM
     Indication: SEIZURE PROPHYLAXIS
     Dosage: 1000 MILLIGRAM DAILY;
     Route: 065
  2. DEXAMETHASONE. [Suspect]
     Active Substance: DEXAMETHASONE
     Indication: BRAIN OEDEMA
     Dosage: 16 MILLIGRAM DAILY;
     Route: 042
  3. CODEINE [Suspect]
     Active Substance: CODEINE
     Indication: PAIN
     Dosage: AS NEEDED
     Route: 065
  4. BUSPIRONE [Concomitant]
     Active Substance: BUSPIRONE HYDROCHLORIDE
     Indication: DRUG THERAPY
     Dosage: 10 MILLIGRAM DAILY;
     Route: 065
  5. DULOXETINE. [Concomitant]
     Active Substance: DULOXETINE
     Indication: DRUG THERAPY
     Dosage: 30 MILLIGRAM DAILY;
     Route: 065
  6. DULOXETINE. [Concomitant]
     Active Substance: DULOXETINE
     Dosage: 60 MILLIGRAM DAILY;
     Route: 065
  7. QUETIAPINE. [Concomitant]
     Active Substance: QUETIAPINE
     Indication: DRUG THERAPY
     Dosage: 50 MILLIGRAM DAILY; AT BEDTIME
     Route: 065

REACTIONS (6)
  - Memory impairment [Not Recovered/Not Resolved]
  - Behaviour disorder [Recovering/Resolving]
  - Agitation [Recovering/Resolving]
  - Delusion [Recovering/Resolving]
  - Mania [Unknown]
  - Toxicity to various agents [Recovering/Resolving]
